FAERS Safety Report 9371603 (Version 2)
Quarter: 2013Q3

REPORT INFORMATION
  Report Type: Spontaneous
  Country: ES (occurrence: ES)
  Receive Date: 20130627
  Receipt Date: 20130818
  Transmission Date: 20140515
  Serious: Yes (Other)
  Sender: FDA-Public Use
  Company Number: PHHY2013ES064104

PATIENT
  Age: 22 Year
  Sex: Female

DRUGS (12)
  1. MYCOPHENOLIC ACID [Suspect]
     Dosage: 360 MG, UNK
  2. MYCOPHENOLIC ACID [Suspect]
     Dosage: 360 MG, Q8H
  3. PREDNISONE [Suspect]
     Dosage: UNK 0.5-.01 MG PER DAY
     Route: 048
  4. PREDNISONE [Suspect]
     Dosage: 0.7 MG, QD
     Route: 048
  5. RIFAMPICIN [Suspect]
     Indication: TUBERCULOSIS
     Dosage: 10 MG/KG, QD
  6. ETHAMBUTOL [Suspect]
     Indication: TUBERCULOSIS
     Dosage: 15 MG/KG, QD
  7. PYRAZINAMIDE [Suspect]
     Indication: TUBERCULOSIS
     Dosage: 25 MG/KG, QD
  8. CICLOSPORIN [Concomitant]
     Dosage: 100 MG, Q12H
  9. STEROIDS NOS [Concomitant]
     Indication: TUBERCULOSIS
     Dosage: 0.5 MG/KG, QD
  10. STEROIDS NOS [Concomitant]
     Dosage: 1 MG/KG, QD
  11. STEROIDS NOS [Concomitant]
     Dosage: UNK TAPERED OFF
  12. ISONIAZID [Concomitant]
     Indication: TUBERCULOSIS
     Dosage: 5 MG/KG, PER DAY

REACTIONS (7)
  - Uveitis [Recovered/Resolved]
  - Choroiditis [Unknown]
  - Chorioretinitis [Recovered/Resolved]
  - Papillophlebitis [Unknown]
  - Visual impairment [Unknown]
  - Disease progression [Unknown]
  - Paradoxical drug reaction [Unknown]
